FAERS Safety Report 7526982-7 (Version None)
Quarter: 2011Q2

REPORT INFORMATION
  Report Type: 
  Country: None (occurrence: None)
  Receive Date: 20110606
  Receipt Date: 20040519
  Transmission Date: 20111010
  Serious: Yes (Hospitalization)
  Sender: FDA-Public Use
  Company Number: PHHO2004CO07329

PATIENT
  Sex: Female

DRUGS (2)
  1. CLONAZEPAM [Concomitant]
  2. CLOZAPINE [Suspect]
     Indication: SCHIZOPHRENIA, PARANOID TYPE
     Dosage: 200 MG/DAY
     Route: 048
     Dates: start: 20021023

REACTIONS (3)
  - PYREXIA [None]
  - URINE ODOUR ABNORMAL [None]
  - TACHYPNOEA [None]
